FAERS Safety Report 5216792-8 (Version None)
Quarter: 2007Q1

REPORT INFORMATION
  Report Type: 
  Country: None (occurrence: None)
  Receive Date: 20070118
  Receipt Date: 20070102
  Transmission Date: 20070707
  Serious: Yes (Disabling)
  Sender: FDA-Public Use
  Company Number: 8021152

PATIENT
  Age: 17 Year
  Sex: Male
  Weight: 40.6 kg

DRUGS (3)
  1. KEPPRA [Suspect]
     Indication: EPILEPSY
     Dosage: 6 ML 2/D PO
     Route: 048
     Dates: start: 20060701
  2. LACTULOSE SOLUTION [Concomitant]
  3. MOVICOL  /01053601/ [Concomitant]

REACTIONS (3)
  - ABNORMAL BEHAVIOUR [None]
  - INTENTIONAL SELF-INJURY [None]
  - PRURITUS [None]
